FAERS Safety Report 13422641 (Version 1)
Quarter: 2017Q2

REPORT INFORMATION
  Report Type: Spontaneous
  Country: US (occurrence: US)
  Receive Date: 20170407
  Receipt Date: 20170407
  Transmission Date: 20170830
  Serious: No
  Sender: FDA-Public Use
  Company Number: None

PATIENT
  Age: 63 Year
  Sex: Male

DRUGS (1)
  1. HUMIRA [Suspect]
     Active Substance: ADALIMUMAB
     Indication: RHEUMATOID ARTHRITIS
     Dosage: 0.8ML/40MG EVERY 7 DAYS SUBCUTANEOUS
     Route: 058
     Dates: start: 20161201

REACTIONS (2)
  - Eye pruritus [None]
  - Therapy change [None]

NARRATIVE: CASE EVENT DATE: 20170401
